FAERS Safety Report 5535129-8 (Version None)
Quarter: 2007Q4

REPORT INFORMATION
  Report Type: 
  Country: None (occurrence: None)
  Receive Date: 20071203
  Receipt Date: 20071119
  Transmission Date: 20080405
  Serious: Yes (Death)
  Sender: FDA-Public Use
  Company Number: 100#03#2007-04908

PATIENT
  Sex: Female

DRUGS (2)
  1. CARBOPLATIN [Suspect]
     Indication: LUNG NEOPLASM MALIGNANT
  2. NAVELBINE [Concomitant]
     Dosage: ORAL
     Route: 048

REACTIONS (1)
  - NEUTROPENIA [None]
